FAERS Safety Report 13571219 (Version 1)
Quarter: 2017Q2

REPORT INFORMATION
  Report Type: Spontaneous
  Country: GB (occurrence: GB)
  Receive Date: 20170523
  Receipt Date: 20170523
  Transmission Date: 20170830
  Serious: Yes (Life-Threatening)
  Sender: FDA-Public Use
  Company Number: GB-TORRENT-00015280

PATIENT
  Age: 27 Year
  Sex: Female
  Weight: 76 kg

DRUGS (10)
  1. FOSTAIR [Concomitant]
     Active Substance: BECLOMETHASONE\FORMOTEROL
  2. SALBUTAMOL [Concomitant]
     Active Substance: ALBUTEROL
  3. UNIPHYLLIN [Concomitant]
     Active Substance: THEOPHYLLINE ANHYDROUS
  4. CARBOCISTEINE [Concomitant]
     Active Substance: CARBOCYSTEINE
  5. TIOTROPIUM [Concomitant]
     Active Substance: TIOTROPIUM
  6. AMOXICILLIN. [Concomitant]
     Active Substance: AMOXICILLIN
  7. FLUOXETINE [Concomitant]
     Active Substance: FLUOXETINE HYDROCHLORIDE
  8. PREDNISOLONE. [Concomitant]
     Active Substance: PREDNISOLONE
  9. MONTELUKAST [Suspect]
     Active Substance: MONTELUKAST SODIUM
  10. BECONASE AQ [Concomitant]
     Active Substance: BECLOMETHASONE DIPROPIONATE MONOHYDRATE

REACTIONS (2)
  - Lip swelling [Recovered/Resolved]
  - Swollen tongue [Recovered/Resolved]

NARRATIVE: CASE EVENT DATE: 20170502
